FAERS Safety Report 9563741 (Version 1)
Quarter: 2013Q3

REPORT INFORMATION
  Report Type: Spontaneous
  Country: US (occurrence: None)
  Receive Date: 20130926
  Receipt Date: 20130926
  Transmission Date: 20140515
  Serious: No
  Sender: FDA-Public Use
  Company Number: None

PATIENT
  Age: 60 Year
  Sex: Male
  Weight: 72.58 kg

DRUGS (3)
  1. FLUNISOLIDE [Suspect]
     Indication: OVERDOSE
     Dosage: 400 SPRAYS
     Route: 055
     Dates: start: 201307, end: 201307
  2. FLUNISOLIDE [Suspect]
     Indication: FEELING ABNORMAL
     Dosage: 400 SPRAYS
     Route: 055
     Dates: start: 201307, end: 201307
  3. MULTIPLE VITAMINS [Concomitant]

REACTIONS (6)
  - Hyposmia [None]
  - Dysgeusia [None]
  - Drug prescribing error [None]
  - Sinus disorder [None]
  - Oral disorder [None]
  - Productive cough [None]
